FAERS Safety Report 12278541 (Version 1)
Quarter: 2016Q2

REPORT INFORMATION
  Report Type: Spontaneous
  Country: FR (occurrence: FR)
  Receive Date: 20160418
  Receipt Date: 20160418
  Transmission Date: 20160815
  Serious: Yes (Other)
  Sender: FDA-Public Use
  Company Number: FR-ASTRAZENECA-2016SE40330

PATIENT
  Age: 11362 Day
  Sex: Male

DRUGS (5)
  1. LARGACTIL [Suspect]
     Active Substance: CHLORPROMAZINE
     Route: 048
     Dates: start: 20160201
  2. DEPAKINE [Suspect]
     Active Substance: VALPROATE SODIUM
     Indication: SCHIZOPHRENIA
     Route: 048
     Dates: start: 20151216, end: 20160212
  3. XEROQUEL [Suspect]
     Active Substance: QUETIAPINE FUMARATE
     Indication: SCHIZOPHRENIA
     Route: 048
     Dates: start: 20160201
  4. DEPAKINE [Suspect]
     Active Substance: VALPROATE SODIUM
     Indication: SCHIZOPHRENIA
     Route: 048
     Dates: start: 20151123, end: 20151216
  5. DEPAKINE [Suspect]
     Active Substance: VALPROATE SODIUM
     Indication: SCHIZOPHRENIA
     Route: 048
     Dates: start: 20160212, end: 20160315

REACTIONS (1)
  - Hepatocellular injury [Recovered/Resolved]

NARRATIVE: CASE EVENT DATE: 20160212
